FAERS Safety Report 6740527-0 (Version None)
Quarter: 2010Q2

REPORT INFORMATION
  Report Type: 
  Country: None (occurrence: None)
  Receive Date: 20100525
  Receipt Date: 20100514
  Transmission Date: 20101027
  Serious: Yes (Hospitalization)
  Sender: FDA-Public Use
  Company Number: JP-ROCHE-697078

PATIENT
  Sex: Female

DRUGS (7)
  1. ACTEMRA [Suspect]
     Indication: RHEUMATOID ARTHRITIS
     Route: 041
     Dates: start: 20100223, end: 20100323
  2. METHOTREXATE [Suspect]
     Indication: RHEUMATOID ARTHRITIS
     Dosage: DOSE FORM: PERORAL AGENT. DOSAGE UNCERTAIN
     Route: 048
     Dates: end: 20100405
  3. RIMATIL [Suspect]
     Route: 048
     Dates: end: 20100405
  4. HYPEN [Concomitant]
     Route: 048
  5. ALTAT [Concomitant]
     Dosage: DRUG REPORTED AS ALTAT(ROXATIDINE ACETATE HYDROCHLORIDE).
     Route: 048
  6. FOLIAMIN [Concomitant]
     Dosage: FORM REPORTED AS  PERORAL AGENT.
     Route: 048
     Dates: start: 20090710, end: 20100405
  7. EMPYNASE [Concomitant]
     Dosage: FORM REPORTED AS PERORAL AGENT.
     Route: 048

REACTIONS (1)
  - INTERSTITIAL LUNG DISEASE [None]
